FAERS Safety Report 14660324 (Version 7)
Quarter: 2018Q2

REPORT INFORMATION
  Report Type: Spontaneous
  Country: FR (occurrence: FR)
  Receive Date: 20180320
  Receipt Date: 20180619
  Transmission Date: 20180711
  Serious: Yes (Life-Threatening, Other)
  Sender: FDA-Public Use
  Company Number: FR-PFIZER INC-2018109494

PATIENT
  Age: 78 Year
  Sex: Female

DRUGS (9)
  1. CEFTRIAXONE. [Suspect]
     Active Substance: CEFTRIAXONE
     Indication: ENDOCARDITIS
     Dosage: 4 G, 1X/DAY
     Route: 042
     Dates: start: 20171024, end: 20171121
  2. NOREPINEPHRINE BITARTRATE. [Suspect]
     Active Substance: NOREPINEPHRINE BITARTRATE
     Indication: SHOCK
     Dosage: 0.2 MG, EVERY 1 HOUR
     Route: 042
     Dates: start: 20171026, end: 20171121
  3. HEPARINE /00027701/ [Suspect]
     Active Substance: HEPARIN SODIUM
     Indication: MITRAL VALVE REPLACEMENT
     Dosage: 2400 IU, 1X/DAY
     Route: 042
     Dates: start: 20171026, end: 20171121
  4. INEXIUM /01479302/ [Suspect]
     Active Substance: ESOMEPRAZOLE MAGNESIUM
     Indication: PROPHYLAXIS AGAINST GASTROINTESTINAL ULCER
     Dosage: 40 MG, 1X/DAY(TIME INTERVAL BETWEEN BEGINNING OF DRUG ADMINISTRATION AND START OF REACTION/E)
     Route: 042
     Dates: start: 20171026, end: 20171121
  5. ADRENALINE /00003901/ [Suspect]
     Active Substance: EPINEPHRINE
     Indication: SHOCK
     Dosage: 0.5 MG, EVERY 1 HOUR
     Route: 042
     Dates: start: 20171026, end: 20171121
  6. PHOXILIUM [Suspect]
     Active Substance: CALCIUM CL\MAGNESIUM CL\POTASSIUM CL\SODIUM BICAR\SODIUM CL\SODIUM PHOSPHATE,DIB
     Dosage: 1600 L, UNK
     Route: 010
     Dates: start: 20171028, end: 20171029
  7. PHOXILIUM [Suspect]
     Active Substance: CALCIUM CL\MAGNESIUM CL\POTASSIUM CL\SODIUM BICAR\SODIUM CL\SODIUM PHOSPHATE,DIB
     Indication: HAEMOFILTRATION
     Dosage: 1600 L, UNK
     Route: 010
     Dates: start: 20171028, end: 20171029
  8. PHOXILIUM [Suspect]
     Active Substance: CALCIUM CL\MAGNESIUM CL\POTASSIUM CL\SODIUM BICAR\SODIUM CL\SODIUM PHOSPHATE,DIB
     Dosage: 1600 L, UNK
     Route: 010
     Dates: start: 20171028, end: 20171029
  9. AMOXICILLIN. [Suspect]
     Active Substance: AMOXICILLIN
     Indication: ENDOCARDITIS
     Dosage: 12 G, 1X/DAY
     Route: 042
     Dates: start: 20171024, end: 20171121

REACTIONS (2)
  - Metabolic acidosis [Recovered/Resolved]
  - Anion gap increased [Recovered/Resolved]

NARRATIVE: CASE EVENT DATE: 20171028
